FAERS Safety Report 9587359 (Version 1)
Quarter: 2013Q4

REPORT INFORMATION
  Report Type: Spontaneous
  Country: US (occurrence: None)
  Receive Date: 20131003
  Receipt Date: 20131003
  Transmission Date: 20140711
  Serious: Yes (Other)
  Sender: FDA-Public Use
  Company Number: None

PATIENT
  Age: 78 Year
  Sex: Female
  Weight: 79.38 kg

DRUGS (2)
  1. VICODIN ES [Suspect]
     Indication: ARTHRALGIA
     Route: 048
     Dates: start: 20131002, end: 20131102
  2. VICODIN ES [Suspect]
     Indication: MUSCULOSKELETAL STIFFNESS
     Route: 048
     Dates: start: 20131002, end: 20131102

REACTIONS (3)
  - Product formulation issue [None]
  - Drug effect decreased [None]
  - Economic problem [None]
